FAERS Safety Report 22658662 (Version 1)
Quarter: 2023Q2

REPORT INFORMATION
  Report Type: Spontaneous
  Country: US (occurrence: US)
  Receive Date: 20230630
  Receipt Date: 20230630
  Transmission Date: 20230722
  Serious: Yes (Other)
  Sender: FDA-Public Use
  Company Number: US-PFIZER INC-PV202300113847

PATIENT
  Age: 66 Year
  Sex: Female

DRUGS (1)
  1. ZINC CHLORIDE [Suspect]
     Active Substance: ZINC CHLORIDE
     Dosage: UNK

REACTIONS (2)
  - Pancytopenia [Recovered/Resolved]
  - Copper deficiency [Recovered/Resolved]
